FAERS Safety Report 9804097 (Version 1)
Quarter: 2014Q1

REPORT INFORMATION
  Report Type: Spontaneous
  Country: FR (occurrence: FR)
  Receive Date: 20140108
  Receipt Date: 20140108
  Transmission Date: 20141002
  Serious: Yes (Hospitalization)
  Sender: FDA-Public Use
  Company Number: PHHY2014FR001421

PATIENT
  Age: 8 Year
  Sex: Female

DRUGS (2)
  1. ILARIS [Suspect]
     Indication: HYPER IGD SYNDROME
     Route: 058
  2. ILARIS [Suspect]
     Indication: OFF LABEL USE

REACTIONS (1)
  - Lung disorder [Unknown]
